FAERS Safety Report 5556865-3 (Version None)
Quarter: 2007Q4

REPORT INFORMATION
  Report Type: 
  Country: None (occurrence: None)
  Receive Date: 20071212
  Receipt Date: 20071212
  Transmission Date: 20080405
  Serious: Yes (Life-Threatening, Hospitalization, Disabling)
  Sender: FDA-Public Use
  Company Number: None

PATIENT
  Age: 60 Year
  Sex: Male
  Weight: 95.2554 kg

DRUGS (3)
  1. ENBREL [Suspect]
     Indication: RHEUMATOID ARTHRITIS
     Dosage: 50 MG ONE TIME PER WEEK SQ
     Route: 058
     Dates: start: 20030915, end: 20070801
  2. NASONEX [Concomitant]
  3. CALCIUM [Concomitant]

REACTIONS (3)
  - DEMYELINATION [None]
  - HEMIPLEGIA [None]
  - NERVOUS SYSTEM DISORDER [None]
